FAERS Safety Report 7738598-8 (Version None)
Quarter: 2011Q3

REPORT INFORMATION
  Report Type: 
  Country: None (occurrence: None)
  Receive Date: 20110908
  Receipt Date: 20110830
  Transmission Date: 20111222
  Serious: Yes (Hospitalization)
  Sender: FDA-Public Use
  Company Number: US-US-EMD SERONO, INC.-7080431

PATIENT
  Sex: Male
  Weight: 136 kg

DRUGS (4)
  1. BACLOFEN [Concomitant]
     Indication: MUSCLE SPASMS
  2. VICODIN [Concomitant]
     Indication: PAIN
  3. ARICEPT [Concomitant]
     Indication: MULTIPLE SCLEROSIS
  4. REBIF [Suspect]
     Indication: MULTIPLE SCLEROSIS
     Route: 058
     Dates: start: 20090305

REACTIONS (5)
  - POST PROCEDURAL INFECTION [None]
  - CHOLECYSTITIS INFECTIVE [None]
  - ABNORMAL DREAMS [None]
  - HALLUCINATION, VISUAL [None]
  - CHOLELITHIASIS [None]
